FAERS Safety Report 4381869-6 (Version None)
Quarter: 2004Q2

REPORT INFORMATION
  Report Type: 
  Country: None (occurrence: None)
  Receive Date: 20040615
  Receipt Date: 20040601
  Transmission Date: 20050107
  Serious: Yes (Death, Hospitalization)
  Sender: FDA-Public Use
  Company Number: 04P-020-0262903-00

PATIENT
  Age: 7200 Year
  Sex: Male

DRUGS (7)
  1. HUMIRA [Suspect]
     Indication: RHEUMATOID ARTHRITIS
     Dosage: 40 MG SUBCUTANEOUS
     Route: 058
     Dates: start: 20040507, end: 20040521
  2. SYNTHROID [Suspect]
     Indication: HYPOTHYROIDISM
     Dosage: 25 MCG, 1 IN 1 D PER ORAL
     Route: 048
  3. ALENDRONATE SODIUM [Concomitant]
  4. CALCIUM CARBONATE [Concomitant]
  5. CELECOXIB [Concomitant]
  6. NORTRIPTYLINE HCL [Concomitant]
  7. CAPTOPRIL [Concomitant]

REACTIONS (3)
  - CHEST PAIN [None]
  - COGNITIVE DISORDER [None]
  - ISCHAEMIA [None]
